FAERS Safety Report 6901489-6 (Version None)
Quarter: 2010Q3

REPORT INFORMATION
  Report Type: 
  Country: None (occurrence: None)
  Receive Date: 20100803
  Receipt Date: 20080215
  Transmission Date: 20110219
  Serious: No
  Sender: FDA-Public Use
  Company Number: US-PFIZER INC-2008013054

PATIENT
  Sex: Female

DRUGS (3)
  1. LYRICA [Suspect]
     Indication: FIBROMYALGIA
     Dates: start: 20071101
  2. CYMBALTA [Concomitant]
  3. TRAMADOL HYDROCHLORIDE [Concomitant]

REACTIONS (2)
  - PAIN [None]
  - WEIGHT INCREASED [None]
